FAERS Safety Report 9359006 (Version 1)
Quarter: 2013Q2

REPORT INFORMATION
  Report Type: Spontaneous
  Country: US (occurrence: US)
  Receive Date: 20130620
  Receipt Date: 20130620
  Transmission Date: 20140414
  Serious: Yes (Hospitalization)
  Sender: FDA-Public Use
  Company Number: US-TEVA-413847USA

PATIENT
  Sex: Male

DRUGS (2)
  1. TREANDA [Suspect]
     Route: 042
     Dates: start: 20130502
  2. TREANDA [Suspect]
     Route: 042
     Dates: start: 20130503

REACTIONS (2)
  - Disease progression [Unknown]
  - Drug ineffective [Unknown]
